FAERS Safety Report 17901800 (Version 1)
Quarter: 2020Q2

REPORT INFORMATION
  Report Type: Other
  Country: US (occurrence: US)
  Receive Date: 20200616
  Receipt Date: 20200616
  Transmission Date: 20200714
  Serious: Yes (Other)
  Sender: FDA-Public Use
  Company Number: US-COMPLETE PHARMACY AND MEDICAL SOLUTIONS-2085965

PATIENT
  Age: 40 Year
  Sex: Male

DRUGS (1)
  1. LIPOLEAN PLUS #3039 INJECTABLE [Suspect]
     Active Substance: CHOLINE\INOSITOL\LEVOCARNITINE\LEUCINE\LIDOCAINE\VITAMIN B COMPLEX
     Route: 041

REACTIONS (1)
  - Urticaria [Recovered/Resolved]
